FAERS Safety Report 21031582 (Version 1)
Quarter: 2022Q3

REPORT INFORMATION
  Report Type: Spontaneous
  Country: US (occurrence: None)
  Receive Date: 20220701
  Receipt Date: 20220701
  Transmission Date: 20221027
  Serious: No
  Sender: FDA-Public Use
  Company Number: US-ROCHE-2952031

PATIENT
  Age: 57 Year
  Sex: Female
  Weight: 61.063 kg

DRUGS (11)
  1. ACTEMRA [Suspect]
     Active Substance: TOCILIZUMAB
     Indication: Rheumatoid arthritis
     Dosage: ONGOING-NO
     Route: 042
  2. ACTEMRA [Suspect]
     Active Substance: TOCILIZUMAB
     Indication: Rheumatoid arthritis
     Dosage: ONGOING-NO
     Route: 058
     Dates: end: 202108
  3. ASPIRIN [Concomitant]
     Active Substance: ASPIRIN
     Dosage: YES
     Route: 048
  4. ATORVASTATIN [Concomitant]
     Active Substance: ATORVASTATIN
     Indication: Diabetes mellitus
     Dosage: YES
     Route: 048
  5. CLOPIDOGREL [Concomitant]
     Active Substance: CLOPIDOGREL BISULFATE
     Dosage: YES
     Route: 048
  6. HYDROCHLOROTHIAZIDE [Concomitant]
     Active Substance: HYDROCHLOROTHIAZIDE
     Indication: Swelling
     Dosage: YES
     Route: 048
  7. METFORMIN [Concomitant]
     Active Substance: METFORMIN HYDROCHLORIDE
     Indication: Diabetes mellitus
     Dosage: 2-500 PILLS TWICE A DAY ;ONGOING: YES
     Route: 048
  8. METOPROLOL [Concomitant]
     Active Substance: METOPROLOL
     Dosage: ONGOING-YES
     Route: 048
  9. OXAPROZIN [Concomitant]
     Active Substance: OXAPROZIN
     Indication: Rheumatoid arthritis
     Dosage: YES
     Route: 048
  10. NOVOLOG [Concomitant]
     Active Substance: INSULIN ASPART
     Indication: Diabetes mellitus
     Dosage: CONTINUOUS PUMP ;ONGOING: YES
     Route: 058
  11. NOVOLOG [Concomitant]
     Active Substance: INSULIN ASPART
     Dosage: BOLUS DOSE FOR MEALS ;ONGOING: YES
     Route: 058

REACTIONS (2)
  - Herpes zoster [Recovered/Resolved]
  - Wound [Recovering/Resolving]

NARRATIVE: CASE EVENT DATE: 20210701
